FAERS Safety Report 17362904 (Version 1)
Quarter: 2020Q1

REPORT INFORMATION
  Report Type: Spontaneous
  Country: US (occurrence: US)
  Receive Date: 20200203
  Receipt Date: 20200203
  Transmission Date: 20200409
  Serious: Yes (Other)
  Sender: FDA-Public Use
  Company Number: US-INSUD PHARMA-2001US00009

PATIENT

DRUGS (1)
  1. FLUOCINONIDE OINTMENT [Suspect]
     Active Substance: FLUOCINONIDE
     Indication: MUCOSAL INFLAMMATION
     Dosage: TWICE A DAY

REACTIONS (5)
  - Chorioretinopathy [Recovered/Resolved]
  - Serous retinal detachment [Recovered/Resolved]
  - Detachment of retinal pigment epithelium [Recovered/Resolved]
  - Visual impairment [Recovered/Resolved]
  - Vision blurred [Recovered/Resolved]
